FAERS Safety Report 10169690 (Version 2)
Quarter: 2014Q2

REPORT INFORMATION
  Report Type: Spontaneous
  Country: TR (occurrence: TR)
  Receive Date: 20140513
  Receipt Date: 20140513
  Transmission Date: 20141212
  Serious: Yes (Other)
  Sender: FDA-Public Use
  Company Number: TR-PFIZER INC-2014119968

PATIENT
  Age: 56 Year
  Sex: Male

DRUGS (4)
  1. RAPAMUNE [Suspect]
     Indication: RENAL TRANSPLANT
     Dosage: 2X1 DAILY ON WEEK DAYS AND 1X1 DAILY ON WEEKENDS
  2. DELTACORTRIL [Concomitant]
     Indication: RENAL TRANSPLANT
     Dosage: 1 DF, 2X/DAY
  3. DELTACORTRIL [Concomitant]
     Dosage: 1 DF, 1X/DAY
  4. CELLCEPT [Concomitant]
     Indication: RENAL TRANSPLANT
     Dosage: UNK

REACTIONS (7)
  - Oedematous kidney [Recovering/Resolving]
  - Lymphocele [Unknown]
  - Oedema [Not Recovered/Not Resolved]
  - Hyperglycaemia [Not Recovered/Not Resolved]
  - Cataract [Unknown]
  - Visual impairment [Unknown]
  - Skin atrophy [Not Recovered/Not Resolved]
